FAERS Safety Report 24808988 (Version 1)
Quarter: 2025Q1

REPORT INFORMATION
  Report Type: Spontaneous
  Country: US (occurrence: US)
  Receive Date: 20250106
  Receipt Date: 20250106
  Transmission Date: 20250409
  Serious: No
  Sender: TERSERA THERAPEUTICS
  Company Number: US-TERSERA THERAPEUTICS LLC-2024TRS005123

PATIENT

DRUGS (3)
  1. PRIALT [Suspect]
     Active Substance: ZICONOTIDE ACETATE
     Indication: Complex regional pain syndrome
     Route: 037
  2. PRIALT [Suspect]
     Active Substance: ZICONOTIDE ACETATE
     Indication: Pain
  3. PRIALT [Suspect]
     Active Substance: ZICONOTIDE ACETATE
     Indication: Neuropathy peripheral

REACTIONS (2)
  - Paranoia [Unknown]
  - Memory impairment [Unknown]
